FAERS Safety Report 5831588-1 (Version None)
Quarter: 2008Q3

REPORT INFORMATION
  Report Type: 
  Country: None (occurrence: None)
  Receive Date: 20080801
  Receipt Date: 20080723
  Transmission Date: 20090109
  Serious: Yes (Other)
  Sender: FDA-Public Use
  Company Number: BR-PFIZER INC-2008062081

PATIENT
  Sex: Female
  Weight: 75 kg

DRUGS (2)
  1. CELEBRA [Suspect]
     Indication: BACK PAIN
     Route: 048
     Dates: start: 20080715, end: 20080718
  2. BETAMETHASONE [Concomitant]

REACTIONS (6)
  - DIZZINESS [None]
  - DYSPNOEA [None]
  - GASTROINTESTINAL SOUNDS ABNORMAL [None]
  - MEMORY IMPAIRMENT [None]
  - PALPITATIONS [None]
  - SOMNOLENCE [None]
